FAERS Safety Report 8765590 (Version 2)
Quarter: 2012Q4

REPORT INFORMATION
  Report Type: 
  Country: JP (occurrence: JP)
  Receive Date: 20120903
  Receipt Date: 20120913
  Transmission Date: 20130627
  Serious: Yes (Other)
  Sender: FDA-Public Use
  Company Number: JP-BRISTOL-MYERS SQUIBB COMPANY-16902900

PATIENT
  Age: 80 Year
  Sex: Female

DRUGS (1)
  1. IRBETAN [Suspect]
     Dosage: tabs, 07Apr2012 to 06May2012, 11May2012 to 03Jun2012.
     Route: 048
     Dates: start: 20120407

REACTIONS (1)
  - Erythema multiforme [Not Recovered/Not Resolved]
